FAERS Safety Report 11935832 (Version 1)
Quarter: 2016Q1

REPORT INFORMATION
  Report Type: Spontaneous
  Country: US (occurrence: US)
  Receive Date: 20160121
  Receipt Date: 20160121
  Transmission Date: 20160526
  Serious: No
  Sender: FDA-Public Use
  Company Number: US-OTSUKA-2015_014801

PATIENT
  Age: 57 Year
  Sex: Female

DRUGS (1)
  1. REXULTI [Suspect]
     Active Substance: BREXPIPRAZOLE
     Indication: PRODUCT USED FOR UNKNOWN INDICATION
     Dosage: 0.5 MG, QD
     Route: 048
     Dates: start: 20151103, end: 20151116

REACTIONS (4)
  - Nausea [Unknown]
  - Negative thoughts [Unknown]
  - Anger [Unknown]
  - Anxiety [Unknown]

NARRATIVE: CASE EVENT DATE: 201511
